FAERS Safety Report 5673142-0 (Version None)
Quarter: 2008Q1

REPORT INFORMATION
  Report Type: 
  Country: None (occurrence: None)
  Receive Date: 20080317
  Receipt Date: 20080304
  Transmission Date: 20080703
  Serious: Yes (Other)
  Sender: FDA-Public Use
  Company Number: CIP08000328

PATIENT
  Age: 50 Year
  Sex: Male

DRUGS (1)
  1. ASACOL [Suspect]
     Dosage: ORAL
     Route: 048

REACTIONS (3)
  - DYSPHAGIA [None]
  - THROAT CANCER [None]
  - WRONG TECHNIQUE IN DRUG USAGE PROCESS [None]
